FAERS Safety Report 10571641 (Version 2)
Quarter: 2016Q3

REPORT INFORMATION
  Report Type: Spontaneous
  Country: US (occurrence: US)
  Receive Date: 20141107
  Receipt Date: 20160815
  Transmission Date: 20161109
  Serious: Yes (Other)
  Sender: FDA-Public Use
  Company Number: US-BAYER-2014-163188

PATIENT
  Age: 36 Year
  Sex: Female

DRUGS (3)
  1. MIRENA [Suspect]
     Active Substance: LEVONORGESTREL
     Indication: CONTRACEPTION
     Dosage: 20 MCG/24HR, UNK
     Route: 015
     Dates: start: 20120828
  2. DOXY [DOXYCYCLINE] [Concomitant]
     Indication: INFECTION
  3. FLAGYL [Concomitant]
     Active Substance: METRONIDAZOLE\METRONIDAZOLE HYDROCHLORIDE
     Indication: INFECTION

REACTIONS (10)
  - Medical device pain [None]
  - Anxiety [None]
  - Pregnancy with contraceptive device [None]
  - Depression [None]
  - Embedded device [None]
  - Emotional distress [None]
  - Injury [None]
  - Device difficult to use [None]
  - Drug ineffective [None]
  - Medical device discomfort [None]

NARRATIVE: CASE EVENT DATE: 2013
